FAERS Safety Report 20844431 (Version 3)
Quarter: 2022Q3

REPORT INFORMATION
  Report Type: Spontaneous
  Country: US (occurrence: US)
  Receive Date: 20220518
  Receipt Date: 20220819
  Transmission Date: 20221027
  Serious: Yes (Hospitalization, Other)
  Sender: FDA-Public Use
  Company Number: US-BIOVITRUM-2022US04898

PATIENT
  Sex: Female

DRUGS (1)
  1. KINERET [Suspect]
     Active Substance: ANAKINRA
     Indication: Rheumatoid arthritis
     Dates: start: 20211103

REACTIONS (5)
  - Neurogenic bladder [Unknown]
  - Sepsis [Unknown]
  - Post procedural infection [Unknown]
  - Infection [Unknown]
  - Product dose omission issue [Unknown]
